FAERS Safety Report 14336089 (Version 1)
Quarter: 2017Q4

REPORT INFORMATION
  Report Type: Spontaneous
  Country: US (occurrence: US)
  Receive Date: 20171229
  Receipt Date: 20171229
  Transmission Date: 20180321
  Serious: Yes (Death, Hospitalization, Other)
  Sender: FDA-Public Use
  Company Number: US-APOTEX-2017AP023356

PATIENT
  Age: 25 Year
  Sex: Male

DRUGS (13)
  1. ALPRAZOLAM. [Suspect]
     Active Substance: ALPRAZOLAM
     Dosage: INHALATION
     Route: 045
  2. COCAINE [Suspect]
     Active Substance: COCAINE
     Dosage: INHALATION
     Route: 045
  3. BENZODIAZEPINE DERIVATIVES [Suspect]
     Active Substance: BENZODIAZEPINE
     Dosage: INHALATION
     Route: 045
  4. LEVAMISOLE [Suspect]
     Active Substance: LEVAMISOLE
     Indication: PRODUCT USED FOR UNKNOWN INDICATION
     Dosage: UNK( INGST + INHAL)
     Route: 050
  5. MARIJUANA [Suspect]
     Active Substance: CANNABIS SATIVA SUBSP. INDICA TOP
     Indication: PRODUCT USED FOR UNKNOWN INDICATION
     Dosage: UNK( INGST + INHAL)
     Route: 050
  6. BENZODIAZEPINE DERIVATIVES [Suspect]
     Active Substance: BENZODIAZEPINE
     Indication: PRODUCT USED FOR UNKNOWN INDICATION
     Dosage: UNK( INGST + INHAL)
     Route: 050
  7. NICOTINE. [Suspect]
     Active Substance: NICOTINE
     Indication: PRODUCT USED FOR UNKNOWN INDICATION
     Dosage: UNK( INGST + INHAL)
     Route: 050
  8. COCAINE [Suspect]
     Active Substance: COCAINE
     Indication: PRODUCT USED FOR UNKNOWN INDICATION
     Dosage: UNK( INGST + INHAL)
     Route: 050
  9. CAFFEINE. [Suspect]
     Active Substance: CAFFEINE
     Indication: PRODUCT USED FOR UNKNOWN INDICATION
     Dosage: UNK( INGST + INHAL)
     Route: 050
  10. LEVAMISOLE [Suspect]
     Active Substance: LEVAMISOLE
     Dosage: INHALATION
     Route: 045
  11. ALPRAZOLAM. [Suspect]
     Active Substance: ALPRAZOLAM
     Indication: PRODUCT USED FOR UNKNOWN INDICATION
     Dosage: UNK ( INGST + INHAL)
     Route: 050
  12. MARIJUANA [Suspect]
     Active Substance: CANNABIS SATIVA SUBSP. INDICA TOP
     Dosage: INHALATION
     Route: 045
  13. CAFFEINE. [Suspect]
     Active Substance: CAFFEINE
     Dosage: INHALATION
     Route: 045

REACTIONS (9)
  - Diabetes insipidus [Fatal]
  - Unresponsive to stimuli [Fatal]
  - Brain injury [Fatal]
  - Electrocardiogram QT prolonged [Fatal]
  - Tachycardia [Fatal]
  - Acute kidney injury [Fatal]
  - Cardio-respiratory arrest [Fatal]
  - Hyperkalaemia [Fatal]
  - Hypotension [Fatal]
